FAERS Safety Report 14272088 (Version 1)
Quarter: 2017Q4

REPORT INFORMATION
  Report Type: Spontaneous
  Country: DE (occurrence: DE)
  Receive Date: 20171211
  Receipt Date: 20171211
  Transmission Date: 20180321
  Serious: Yes (Hospitalization, Other)
  Sender: FDA-Public Use
  Company Number: DE-OTSUKA-2017_025381

PATIENT
  Age: 34 Year
  Sex: Male

DRUGS (11)
  1. QUETIAPINE. [Suspect]
     Active Substance: QUETIAPINE
     Dosage: 1 DF, UNK
     Route: 048
     Dates: end: 20160909
  2. ARIPIPRAZOLE. [Suspect]
     Active Substance: ARIPIPRAZOLE
     Indication: PRODUCT USED FOR UNKNOWN INDICATION
     Dosage: 1 DF = UPTO 30MG FROM 11-AUG (YR UNK) TO 09-SEP-2016 1DF = 5MG TO 10MG (14-DEC-2016 TO 21-
     Route: 048
     Dates: start: 20170207
  3. QUETIAPINE. [Suspect]
     Active Substance: QUETIAPINE
     Indication: PRODUCT USED FOR UNKNOWN INDICATION
     Dosage: 1 DF = UP TO 400MG 11-AUG (YR UNK) TO 09-SEP-2016 1 DF = 100 TO 300MG ON 14-DEC-2016 1 DF = U
     Route: 048
     Dates: start: 20170207
  4. QUETIAPINE. [Suspect]
     Active Substance: QUETIAPINE
     Indication: PRODUCT USED FOR UNKNOWN INDICATION
     Dosage: 1 DF = UP TO 400MG 11-AUG (YR UNK) TO 09-SEP-2016 1 DF = 100 TO 300MG ON 14-DEC-2016 1 DF = U
     Route: 048
     Dates: start: 20161214
  5. ARIPIPRAZOLE. [Suspect]
     Active Substance: ARIPIPRAZOLE
     Indication: PRODUCT USED FOR UNKNOWN INDICATION
     Dosage: 1 DF = UPTO 30MG FROM 11-AUG (YR UNK) TO 09-SEP-2016 1DF = 5MG TO 10MG (14-DEC-2016 TO 21-
     Route: 048
     Dates: start: 20161214, end: 20161221
  6. ARIPIPRAZOLE. [Suspect]
     Active Substance: ARIPIPRAZOLE
     Indication: PRODUCT USED FOR UNKNOWN INDICATION
     Dosage: 1 DF = UPTO 30MG FROM 11-AUG (YR UNK) TO 09-SEP-2016 1DF = 5MG TO 10MG (14-DEC-2016 TO 21-
     Route: 048
     Dates: start: 20161222
  7. QUETIAPINE. [Suspect]
     Active Substance: QUETIAPINE
     Dosage: 1 DF, UNK
     Route: 048
     Dates: start: 20161214
  8. KALIUM DURULE [Concomitant]
     Indication: PRODUCT USED FOR UNKNOWN INDICATION
     Dosage: 1 DF, UNK (1 DF = 1 SACHET)
     Route: 065
     Dates: start: 20161214
  9. ARIPIPRAZOLE. [Suspect]
     Active Substance: ARIPIPRAZOLE
     Indication: PRODUCT USED FOR UNKNOWN INDICATION
     Dosage: 1 DF = UPTO 30MG FROM 11-AUG (YR UNK) TO 09-SEP-2016 1DF = 5MG TO 10MG (14-DEC-2016 TO 21-
     Route: 048
     Dates: end: 20160909
  10. QUETIAPINE. [Suspect]
     Active Substance: QUETIAPINE
     Indication: PRODUCT USED FOR UNKNOWN INDICATION
     Dosage: 1 DF = UP TO 400MG 11-AUG (YR UNK) TO 09-SEP-2016 1 DF = 100 TO 300MG ON 14-DEC-2016 1 DF = U
     Route: 048
     Dates: start: 20160909
  11. QUETIAPINE. [Suspect]
     Active Substance: QUETIAPINE
     Dosage: 1 DF, UNK
     Route: 048
     Dates: end: 20170207

REACTIONS (2)
  - Seizure [Recovered/Resolved]
  - Treatment noncompliance [Unknown]

NARRATIVE: CASE EVENT DATE: 20161215
